FAERS Safety Report 6022297-7 (Version None)
Quarter: 2008Q4

REPORT INFORMATION
  Report Type: 
  Country: None (occurrence: None)
  Receive Date: 20081230
  Receipt Date: 20081222
  Transmission Date: 20090506
  Serious: Yes (Hospitalization)
  Sender: FDA-Public Use
  Company Number: JP-JNJFOC-20081206550

PATIENT
  Age: 63 Year
  Sex: Male

DRUGS (3)
  1. CRAVIT [Suspect]
     Indication: URINARY TRACT INFECTION
     Route: 048
  2. RIZABEN [Suspect]
     Indication: URTICARIA
     Route: 065
  3. RIZABEN [Suspect]
     Indication: ERYTHEMA
     Route: 065

REACTIONS (1)
  - CHOLESTASIS [None]
